FAERS Safety Report 5147158-7 (Version None)
Quarter: 2006Q4

REPORT INFORMATION
  Report Type: 
  Country: None (occurrence: None)
  Receive Date: 20061108
  Receipt Date: 20061108
  Transmission Date: 20070319
  Serious: Yes (Other)
  Sender: FDA-Public Use
  Company Number: None

PATIENT
  Sex: Female
  Weight: 121.564 kg

DRUGS (1)
  1. GAMUNEX [Suspect]
     Dosage: 40GM  WEEKLY  IV
     Route: 042
     Dates: start: 20061107, end: 20061107

REACTIONS (6)
  - BACK PAIN [None]
  - CHILLS [None]
  - HEART RATE INCREASED [None]
  - HYPERTENSION [None]
  - INFUSION RELATED REACTION [None]
  - RESPIRATORY RATE INCREASED [None]
